FAERS Safety Report 5148681-1 (Version None)
Quarter: 2006Q4

REPORT INFORMATION
  Report Type: 
  Country: None (occurrence: None)
  Receive Date: 20061103
  Receipt Date: 20061030
  Transmission Date: 20070319
  Serious: Yes (Death, Hospitalization)
  Sender: FDA-Public Use
  Company Number: DEWYE690524MAY05

PATIENT
  Age: 61 Year
  Sex: Male

DRUGS (4)
  1. TACROLIMUS, CONTROL FOR SIROLIMUS (TACROLIMUS, CONTROL FOR SIROLIMUS, [Suspect]
     Indication: PROPHYLAXIS AGAINST TRANSPLANT REJECTION
     Dosage: 10 MG
     Route: 048
     Dates: start: 20050122, end: 20050214
  2. ZENAPAX [Concomitant]
  3. MYCOPHENOLATE MOFETIL [Suspect]
     Indication: PROPHYLAXIS AGAINST TRANSPLANT REJECTION
     Dosage: 1500MG
     Route: 048
     Dates: start: 20050123, end: 20050213
  4. MYCOPHENOLATE MOFETIL [Suspect]
     Indication: PROPHYLAXIS AGAINST TRANSPLANT REJECTION
     Dosage: 1500MG
     Route: 048
     Dates: start: 20050224

REACTIONS (3)
  - KLEBSIELLA SEPSIS [None]
  - NEUTROPENIA [None]
  - SEPTIC SHOCK [None]
